FAERS Safety Report 15125383 (Version 1)
Quarter: 2018Q3

REPORT INFORMATION
  Report Type: Spontaneous
  Country: US (occurrence: US)
  Receive Date: 20180614
  Receipt Date: 20180614
  Transmission Date: 20181010
  Serious: Yes (Hospitalization)
  Sender: FDA-Public Use
  Company Number: None

PATIENT
  Age: 49 Year
  Sex: Female
  Weight: 94.4 kg

DRUGS (4)
  1. CARBOPLATIN. [Suspect]
     Active Substance: CARBOPLATIN
     Dates: end: 20180501
  2. DOXORUBICIN HYDROCHLORIDE. [Suspect]
     Active Substance: DOXORUBICIN HYDROCHLORIDE
     Dates: end: 20180209
  3. CYCLOPHOSPHAMIDE. [Suspect]
     Active Substance: CYCLOPHOSPHAMIDE
     Dates: end: 20180209
  4. TAXOL [Suspect]
     Active Substance: PACLITAXEL
     Dates: end: 20180515

REACTIONS (12)
  - Dyspnoea exertional [None]
  - Exercise tolerance decreased [None]
  - Anxiety [None]
  - Pulmonary embolism [None]
  - Palpitations [None]
  - Weight increased [None]
  - Anaemia [None]
  - Pulmonary mass [None]
  - Nausea [None]
  - Neuropathy peripheral [None]
  - Deep vein thrombosis [None]
  - Tachycardia [None]

NARRATIVE: CASE EVENT DATE: 20180607
